FAERS Safety Report 6270529-2 (Version None)
Quarter: 2009Q3

REPORT INFORMATION
  Report Type: 
  Country: None (occurrence: None)
  Receive Date: 20090716
  Receipt Date: 20090709
  Transmission Date: 20100115
  Serious: Yes (Other)
  Sender: FDA-Public Use
  Company Number: US-ASTRAZENECA-2009UW13435

PATIENT
  Age: 34 Year
  Sex: Female
  Weight: 77.6 kg

DRUGS (10)
  1. SEROQUEL [Suspect]
     Indication: DEPRESSION
     Route: 048
     Dates: start: 20000101
  2. SEROQUEL [Suspect]
     Indication: BIPOLAR DISORDER
     Route: 048
     Dates: start: 20000101
  3. SEROQUEL [Suspect]
     Indication: SCHIZOPHRENIA
     Route: 048
     Dates: start: 20000101
  4. ZYPREXA [Concomitant]
     Dates: start: 20040101, end: 20040101
  5. LEXAPRO [Concomitant]
     Dates: start: 20080101
  6. ABILIFY [Concomitant]
     Dates: start: 20040101
  7. THORAZINE [Concomitant]
     Dates: start: 20030101
  8. TRILAFON [Concomitant]
     Dates: start: 20030101
  9. AMBIEN [Concomitant]
     Dates: start: 20070101
  10. XANAX [Concomitant]
     Dates: start: 20090101

REACTIONS (5)
  - BLOOD CHOLESTEROL INCREASED [None]
  - DIABETES MELLITUS [None]
  - NEOPLASM MALIGNANT [None]
  - PANCREATITIS CHRONIC [None]
  - SALIVARY GLAND CANCER [None]
